FAERS Safety Report 5480165-3 (Version None)
Quarter: 2007Q4

REPORT INFORMATION
  Report Type: 
  Country: None (occurrence: None)
  Receive Date: 20071003
  Receipt Date: 20070918
  Transmission Date: 20080405
  Serious: Yes (Death)
  Sender: FDA-Public Use
  Company Number: 2007RR-10142

PATIENT
  Age: 81 Year
  Sex: Female
  Weight: 68 kg

DRUGS (16)
  1. AMOXICILLIN [Suspect]
     Indication: LOWER RESPIRATORY TRACT INFECTION
     Dosage: 500 MG, TID, ORAL
     Route: 048
     Dates: start: 20070213
  2. AMIODARONE HCL [Concomitant]
  3. AMLODIPINE [Concomitant]
  4. DISPERSIBLE ASPIRIN (ASPIRIN) [Concomitant]
  5. BENDROFLUMETHIAZIDE (BENDROFLUAZIDE) [Concomitant]
  6. BRINZOLAMIDE (BRINZOLAMIDE) [Concomitant]
  7. DIGOXIN [Concomitant]
  8. DOXAZOSIN MESYLATE [Concomitant]
  9. FOLIC ACID [Concomitant]
  10. HYDROXOCOBALAMIN (HYDROXOCOBALAMIN) [Concomitant]
  11. HYPROMELLOSE (HYPROMELLOSE) [Concomitant]
  12. IRON SULPHATE (IRON) [Concomitant]
  13. LATANOPROST [Concomitant]
  14. LISINOPRIL [Concomitant]
  15. PREDNISONE [Concomitant]
  16. SALAMOL (SALBUTAMOL) [Concomitant]

REACTIONS (2)
  - ANAPHYLACTIC REACTION [None]
  - BRAIN DEATH [None]
